FAERS Safety Report 20678855 (Version 3)
Quarter: 2022Q2

REPORT INFORMATION
  Report Type: Other
  Country: JP (occurrence: JP)
  Receive Date: 20220406
  Receipt Date: 20220601
  Transmission Date: 20220721
  Serious: Yes (Other)
  Sender: FDA-Public Use
  Company Number: JP-CHUGAI-2022011021

PATIENT
  Age: 72 Year
  Sex: Male
  Weight: 80.2 kg

DRUGS (17)
  1. POLATUZUMAB VEDOTIN [Suspect]
     Active Substance: POLATUZUMAB VEDOTIN
     Indication: Diffuse large B-cell lymphoma
     Dosage: 1.8 MILLIGRAM/KILOGRAM, ONCE/4WEEKS
     Route: 041
     Dates: start: 20210908, end: 20211005
  2. POLATUZUMAB VEDOTIN [Suspect]
     Active Substance: POLATUZUMAB VEDOTIN
     Dosage: 1.8 MILLIGRAM/KILOGRAM, SINGLE
     Route: 041
     Dates: start: 20211201, end: 20211201
  3. POLATUZUMAB VEDOTIN [Suspect]
     Active Substance: POLATUZUMAB VEDOTIN
     Route: 041
  4. BENDAMUSTINE HYDROCHLORIDE [Suspect]
     Active Substance: BENDAMUSTINE HYDROCHLORIDE
     Indication: Diffuse large B-cell lymphoma
     Dosage: UNK?DATE OF MOST RECENT DOSE:01/DEC/2021
     Route: 041
     Dates: start: 20210908
  5. RITUXIMAB [Concomitant]
     Active Substance: RITUXIMAB
     Indication: Diffuse large B-cell lymphoma
     Dosage: UNK
     Route: 041
     Dates: start: 20210907, end: 20211130
  6. LEVOFLOXACIN HEMIHYDRATE [Concomitant]
     Active Substance: LEVOFLOXACIN
     Indication: Infection prophylaxis
     Dosage: UNK
     Route: 065
     Dates: end: 20210907
  7. LEVOFLOXACIN HEMIHYDRATE [Concomitant]
     Active Substance: LEVOFLOXACIN
     Dosage: UNK
     Route: 065
     Dates: start: 20211026, end: 20211101
  8. ACYCLOVIR [Concomitant]
     Active Substance: ACYCLOVIR
     Indication: Infection prophylaxis
     Dosage: UNK
     Route: 065
     Dates: end: 20210912
  9. ACYCLOVIR [Concomitant]
     Active Substance: ACYCLOVIR
     Dosage: UNK
     Route: 065
     Dates: start: 20210924
  10. FLUCONAZOLE [Concomitant]
     Active Substance: FLUCONAZOLE
     Indication: Infection prophylaxis
     Dosage: UNK
     Route: 065
     Dates: start: 20210908, end: 20210912
  11. SULFAMETHOXAZOLE\TRIMETHOPRIM [Concomitant]
     Active Substance: SULFAMETHOXAZOLE\TRIMETHOPRIM
     Indication: Infection prophylaxis
     Dosage: UNK
     Dates: start: 20210908, end: 20210913
  12. PENTAMIDINE [Concomitant]
     Active Substance: PENTAMIDINE
     Indication: Infection prophylaxis
     Dosage: UNK, SINGLE
     Route: 065
     Dates: start: 20210927, end: 20210927
  13. PENTAMIDINE [Concomitant]
     Active Substance: PENTAMIDINE
     Dosage: UNK, SINGLE
     Route: 065
     Dates: start: 20211102, end: 20211102
  14. PENTAMIDINE [Concomitant]
     Active Substance: PENTAMIDINE
     Dosage: UNK, SINGLE
     Route: 065
     Dates: start: 20211130, end: 20211130
  15. ASPIRIN [Concomitant]
     Active Substance: ASPIRIN
     Dosage: UNK
     Route: 065
     Dates: end: 20210914
  16. RITUXAN [Concomitant]
     Active Substance: RITUXIMAB
     Indication: Diffuse large B-cell lymphoma
     Route: 041
  17. BENDAMUSTINE HYDROCHLORIDE [Concomitant]
     Active Substance: BENDAMUSTINE HYDROCHLORIDE
     Indication: Diffuse large B-cell lymphoma
     Route: 041

REACTIONS (7)
  - Colitis [Recovered/Resolved]
  - Pyrexia [Recovered/Resolved]
  - Neutrophil count decreased [Unknown]
  - Haemorrhoidal haemorrhage [Recovered/Resolved]
  - Pharyngitis [Recovered/Resolved]
  - Rash [Recovered/Resolved]
  - Drug ineffective [Unknown]

NARRATIVE: CASE EVENT DATE: 20210913
